FAERS Safety Report 5336174-8 (Version None)
Quarter: 2007Q2

REPORT INFORMATION
  Report Type: 
  Country: None (occurrence: None)
  Receive Date: 20070302
  Receipt Date: 20061213
  Transmission Date: 20071010
  Serious: No
  Sender: FDA-Public Use
  Company Number: PHEH2006US15251

PATIENT
  Age: 69 Year
  Sex: Male

DRUGS (1)
  1. ENABLEX [Suspect]
     Dates: start: 20061101

REACTIONS (3)
  - DYSURIA [None]
  - MICTURITION URGENCY [None]
  - POLLAKIURIA [None]
